FAERS Safety Report 6190087-0 (Version None)
Quarter: 2009Q2

REPORT INFORMATION
  Report Type: 
  Country: None (occurrence: None)
  Receive Date: 20090514
  Receipt Date: 20090318
  Transmission Date: 20091009
  Serious: No
  Sender: FDA-Public Use
  Company Number: US-BAYER-200910882BCC

PATIENT
  Age: 18 Year
  Sex: Female
  Weight: 54 kg

DRUGS (4)
  1. ALEVE (CAPLET) [Suspect]
     Indication: ANALGESIA
     Dosage: 2 CAPLETS PER DAY ONLY WHEN NEEDED
     Route: 048
     Dates: start: 20070101
  2. ALEVE (CAPLET) [Suspect]
     Dosage: TOTAL DAILY DOSE: 2 DF
     Route: 048
     Dates: start: 20090101, end: 20090101
  3. ALBUTEROL [Concomitant]
     Indication: DRUG USE FOR UNKNOWN INDICATION
  4. MIDOL [Concomitant]
     Indication: DRUG USE FOR UNKNOWN INDICATION
     Route: 065

REACTIONS (1)
  - PAIN IN EXTREMITY [None]
